FAERS Safety Report 12281359 (Version 2)
Quarter: 2016Q2

REPORT INFORMATION
  Report Type: Spontaneous
  Country: CZ (occurrence: CZ)
  Receive Date: 20160419
  Receipt Date: 20160503
  Transmission Date: 20160815
  Serious: Yes (Hospitalization, Other)
  Sender: FDA-Public Use
  Company Number: CZ-PFIZER INC-2016215184

PATIENT
  Age: 65 Year
  Sex: Male
  Weight: 87 kg

DRUGS (1)
  1. SALAZOPYRIN EN [Suspect]
     Active Substance: SULFASALAZINE
     Indication: DIVERTICULITIS
     Dosage: 1 G, 3X/DAY
     Route: 048
     Dates: start: 20160301, end: 20160325

REACTIONS (5)
  - Product use issue [Recovered/Resolved]
  - Genital swelling [Recovered/Resolved]
  - Pyrexia [Recovered/Resolved]
  - Rash generalised [Not Recovered/Not Resolved]
  - Swelling face [Recovered/Resolved]

NARRATIVE: CASE EVENT DATE: 20160301
